FAERS Safety Report 6292470-1 (Version None)
Quarter: 2009Q3

REPORT INFORMATION
  Report Type: 
  Country: None (occurrence: None)
  Receive Date: 20090731
  Receipt Date: 20090721
  Transmission Date: 20100115
  Serious: Yes (Other)
  Sender: FDA-Public Use
  Company Number: JP-PFIZER INC-2009244553

PATIENT
  Age: 5 Year

DRUGS (1)
  1. GENOTROPIN [Suspect]
     Dosage: 0.5 MG, DAILY
     Route: 058

REACTIONS (2)
  - APNOEA [None]
  - TONSILLAR HYPERTROPHY [None]
